FAERS Safety Report 8139573-4 (Version None)
Quarter: 2012Q1

REPORT INFORMATION
  Report Type: 
  Country: None (occurrence: None)
  Receive Date: 20120215
  Receipt Date: 20120131
  Transmission Date: 20120608
  Serious: Yes (Hospitalization, Other)
  Sender: FDA-Public Use
  Company Number: PHHY2012FR003925

PATIENT
  Age: 65 Year
  Sex: Male

DRUGS (9)
  1. RASILEZ [Suspect]
     Dosage: 300 MG
     Dates: start: 20110601, end: 20120111
  2. IRBESARTAN + HYDROCHLOROTHIAZIDE [Suspect]
     Indication: HYPERTENSION
     Dosage: 1 DF, QD
  3. LERCANIDIPINE [Concomitant]
     Indication: HYPERTENSION
     Dosage: 10 MG, QD
  4. CRESTOR [Concomitant]
     Indication: DYSLIPIDAEMIA
     Dosage: 20 MG, QD
  5. RASILEZ [Suspect]
     Indication: HYPERTENSION
     Dosage: 150 MG
     Route: 048
     Dates: start: 20101101
  6. METFORMIN HCL [Concomitant]
     Indication: TYPE 2 DIABETES MELLITUS
     Dosage: 2 DF
  7. ANGIOTENSIN CONVERTING ENZYME BLOCKERS [Concomitant]
  8. BISOPROLOL FUMARATE [Concomitant]
     Indication: HYPERTENSION
     Dosage: 10 MG, QD
  9. ASPIRIN [Concomitant]
     Indication: ARTERIOSCLEROSIS
     Dosage: 160 MG, QD

REACTIONS (3)
  - ANGINA PECTORIS [None]
  - CHEST PAIN [None]
  - CORONARY ARTERY STENOSIS [None]
